FAERS Safety Report 15636944 (Version 1)
Quarter: 2018Q4

REPORT INFORMATION
  Report Type: Spontaneous
  Country: US (occurrence: US)
  Receive Date: 20181120
  Receipt Date: 20181120
  Transmission Date: 20190205
  Serious: Yes (Other)
  Sender: FDA-Public Use
  Company Number: US-SA-2017SA268214

PATIENT
  Age: 69 Year
  Sex: Female
  Weight: 89.35 kg

DRUGS (4)
  1. CYTOXAN [Concomitant]
     Active Substance: CYCLOPHOSPHAMIDE
     Dosage: 1000-1200 MG
     Route: 065
  2. NEOSAR [Concomitant]
     Active Substance: CYCLOPHOSPHAMIDE
     Route: 065
  3. TAXOTERE [Suspect]
     Active Substance: DOCETAXEL
     Indication: BREAST CANCER
     Dosage: 130-150 MG, Q3W
     Route: 042
     Dates: start: 20110713, end: 20110713
  4. TAXOTERE [Suspect]
     Active Substance: DOCETAXEL
     Dosage: 130-150MG, Q3W
     Route: 042
     Dates: start: 20110914, end: 20110914

REACTIONS (2)
  - Psychological trauma [Unknown]
  - Alopecia [Recovering/Resolving]

NARRATIVE: CASE EVENT DATE: 20110930
